FAERS Safety Report 8923822 (Version 1)
Quarter: 2012Q4

REPORT INFORMATION
  Report Type: 
  Country: US (occurrence: US)
  Receive Date: 20121126
  Receipt Date: 20121126
  Transmission Date: 20130627
  Serious: Yes (Hospitalization, Other)
  Sender: FDA-Public Use
  Company Number: US-PFIZER INC-2012293208

PATIENT
  Age: 49 Year
  Sex: Female
  Weight: 113.4 kg

DRUGS (3)
  1. LYRICA [Suspect]
     Indication: FIBROMYALGIA
     Dosage: 150 mg, 2x/day
     Route: 048
     Dates: start: 2006
  2. RELAFEN [Concomitant]
     Dosage: UNK
  3. TRAMADOL [Concomitant]
     Dosage: UNK

REACTIONS (12)
  - Wound [Unknown]
  - Staphylococcal infection [Unknown]
  - Apparent death [Recovered/Resolved]
  - Coma [Recovered/Resolved]
  - Organ failure [Unknown]
  - Visual acuity reduced [Unknown]
  - Retinal ischaemia [Unknown]
  - Abasia [Unknown]
  - Limb discomfort [Unknown]
  - Speech disorder [Unknown]
  - Arthropathy [Unknown]
  - Pain [Unknown]
